APPROVED DRUG PRODUCT: ATENOLOL
Active Ingredient: ATENOLOL
Strength: 50MG
Dosage Form/Route: TABLET;ORAL
Application: A074127 | Product #001
Applicant: NOSTRUM LABORATORIES INC
Approved: Feb 21, 1995 | RLD: No | RS: No | Type: DISCN